FAERS Safety Report 17203333 (Version 2)
Quarter: 2021Q3

REPORT INFORMATION
  Report Type: Spontaneous
  Country: FR (occurrence: FR)
  Receive Date: 20191226
  Receipt Date: 20210929
  Transmission Date: 20211014
  Serious: Yes (Other)
  Sender: FDA-Public Use
  Company Number: FR-MYLANLABS-2019M1126849

PATIENT
  Sex: Female

DRUGS (3)
  1. ACTISKENAN [Suspect]
     Active Substance: MORPHINE SULFATE
     Indication: PAIN
     Dosage: UNK
     Route: 065
  2. TRAMADOL. [Suspect]
     Active Substance: TRAMADOL
     Indication: PAIN
     Dosage: UNK
     Route: 065
  3. ACUPAN [Suspect]
     Active Substance: NEFOPAM HYDROCHLORIDE
     Indication: PAIN
     Dosage: 60 MILLIGRAM, QD
     Route: 048
     Dates: start: 2015

REACTIONS (6)
  - Uveitis [Recovered/Resolved]
  - Product use issue [Unknown]
  - Product use in unapproved indication [Unknown]
  - Glaucoma [Recovered/Resolved]
  - Blepharospasm [Recovered/Resolved]
  - Ocular hypertension [Recovered/Resolved]

NARRATIVE: CASE EVENT DATE: 2015
